FAERS Safety Report 4439175-7 (Version None)
Quarter: 2004Q3

REPORT INFORMATION
  Report Type: 
  Country: None (occurrence: None)
  Receive Date: 20040831
  Receipt Date: 20040826
  Transmission Date: 20050211
  Serious: Yes (Other)
  Sender: FDA-Public Use
  Company Number: 002547

PATIENT
  Age: 60 Year
  Sex: Female

DRUGS (4)
  1. MEDROXYPROGESTERONE ACETATE [Suspect]
     Dates: start: 19950603, end: 19980301
  2. PROVERA [Suspect]
     Dates: start: 19950603, end: 19980301
  3. PREMPHASE (PREMARIN;CYCRIN 14/14) [Suspect]
     Dates: start: 19980301, end: 19980601
  4. MEDROXYPROGESTERONE ACETATE [Suspect]
     Dates: start: 19980601, end: 19980701

REACTIONS (1)
  - BREAST CANCER [None]
